FAERS Safety Report 8157579 (Version 3)
Quarter: 2013Q1

REPORT INFORMATION
  Report Type: Spontaneous
  Country: US (occurrence: US)
  Receive Date: 20110927
  Receipt Date: 20130218
  Transmission Date: 20140127
  Serious: Yes (Other)
  Sender: FDA-Public Use
  Company Number: US-ASTRAZENECA-2011SE12707

PATIENT
  Sex: Male

DRUGS (9)
  1. SEROQUEL [Suspect]
     Route: 048
     Dates: start: 20050214
  2. SEROQUEL [Suspect]
     Dosage: 100 QHS
     Route: 048
     Dates: start: 20070317
  3. KLONOPIN [Concomitant]
     Dosage: 0.5 BID PRN
     Dates: start: 20070317
  4. LITHIUM [Concomitant]
     Dates: start: 20040301
  5. LITHIUM [Concomitant]
     Dosage: 300 QHS
     Dates: start: 20070317
  6. ZYPREXA [Concomitant]
     Dates: start: 200403
  7. ZYPREXA [Concomitant]
     Dates: start: 20070317
  8. RISPERDAL [Concomitant]
     Dates: start: 20040301
  9. RISPERDAL [Concomitant]
     Dates: start: 20070317

REACTIONS (3)
  - Pancreatitis [Unknown]
  - Diabetic coma [Unknown]
  - Type 2 diabetes mellitus [Unknown]
